FAERS Safety Report 5641926-0 (Version None)
Quarter: 2008Q1

REPORT INFORMATION
  Report Type: 
  Country: None (occurrence: None)
  Receive Date: 20080131
  Receipt Date: 20071026
  Transmission Date: 20080703
  Serious: Yes (Hospitalization)
  Sender: FDA-Public Use
  Company Number: 163-21880-07101623

PATIENT
  Age: 79 Year
  Sex: Male
  Weight: 74.8435 kg

DRUGS (1)
  1. REVLIMID [Suspect]
     Indication: MULTIPLE MYELOMA
     Dosage: 5 MG, 1 IN 1 D, ORAL
     Route: 048
     Dates: start: 20060226, end: 20071026

REACTIONS (1)
  - RED BLOOD CELL COUNT DECREASED [None]
